FAERS Safety Report 13323169 (Version 2)
Quarter: 2017Q2

REPORT INFORMATION
  Report Type: Spontaneous
  Country: GB (occurrence: GB)
  Receive Date: 20170310
  Receipt Date: 20170622
  Transmission Date: 20170830
  Serious: Yes (Death, Hospitalization, Other)
  Sender: FDA-Public Use
  Company Number: GB-FRESENIUS KABI-FK201701995

PATIENT
  Age: 67 Year
  Sex: Male

DRUGS (16)
  1. ISOSORBIDE. [Concomitant]
     Active Substance: ISOSORBIDE
     Indication: PRODUCT USED FOR UNKNOWN INDICATION
     Route: 065
  2. LEVOTHYROXINE. [Concomitant]
     Active Substance: LEVOTHYROXINE
     Indication: HYPOTHYROIDISM
     Route: 065
  3. OMEPRAZOLE. [Concomitant]
     Active Substance: OMEPRAZOLE
     Route: 065
  4. FUROSEMIDE (MANUFACTURER UNKNOWN) [Suspect]
     Active Substance: FUROSEMIDE
     Indication: FLUID RETENTION
     Route: 065
     Dates: start: 201611
  5. WARFARIN [Suspect]
     Active Substance: WARFARIN
     Route: 065
  6. METOLAZONE. [Suspect]
     Active Substance: METOLAZONE
     Indication: FLUID RETENTION
     Dates: end: 201611
  7. PL00289/0071SPIRONOLACTONE TABLETS 25 MG [Suspect]
     Active Substance: SPIRONOLACTONE
     Indication: FLUID RETENTION
     Route: 065
     Dates: end: 201611
  8. GLYCERYL TRINITRATE [Concomitant]
     Active Substance: NITROGLYCERIN
     Indication: PRODUCT USED FOR UNKNOWN INDICATION
     Route: 065
  9. OMEPRAZOLE. [Concomitant]
     Active Substance: OMEPRAZOLE
     Indication: PRODUCT USED FOR UNKNOWN INDICATION
     Route: 065
  10. WARFARIN [Suspect]
     Active Substance: WARFARIN
     Indication: CARDIAC DISORDER
     Route: 065
     Dates: start: 201606
  11. WARFARIN [Suspect]
     Active Substance: WARFARIN
     Route: 065
  12. WARFARIN [Suspect]
     Active Substance: WARFARIN
     Route: 065
  13. ENALAPRIL [Concomitant]
     Active Substance: ENALAPRIL
     Indication: PRODUCT USED FOR UNKNOWN INDICATION
     Route: 065
  14. TRAMADOL. [Concomitant]
     Active Substance: TRAMADOL
     Indication: OSTEOARTHRITIS
     Route: 065
     Dates: start: 201511
  15. WARFARIN [Suspect]
     Active Substance: WARFARIN
     Route: 065
  16. ALLOPURINOL. [Concomitant]
     Active Substance: ALLOPURINOL
     Indication: GOUT
     Route: 065

REACTIONS (15)
  - Muscle spasms [Unknown]
  - Nausea [Unknown]
  - Rash [Unknown]
  - Orthopnoea [Not Recovered/Not Resolved]
  - Therapeutic response decreased [Unknown]
  - Respiratory failure [Unknown]
  - Asthenia [Unknown]
  - Sepsis [Fatal]
  - Drug interaction [Unknown]
  - Decreased appetite [Unknown]
  - Lethargy [Unknown]
  - Respiratory tract infection [Fatal]
  - Urine output decreased [Unknown]
  - Acute kidney injury [Unknown]
  - Dyspnoea at rest [Not Recovered/Not Resolved]

NARRATIVE: CASE EVENT DATE: 201611
